FAERS Safety Report 9143161 (Version 1)
Quarter: 2013Q1

REPORT INFORMATION
  Report Type: Spontaneous
  Country: US (occurrence: US)
  Receive Date: 20130306
  Receipt Date: 20130306
  Transmission Date: 20140127
  Serious: No
  Sender: FDA-Public Use
  Company Number: US-ENDO PHARMACEUTICALS INC.-OPER20110129

PATIENT
  Sex: Female

DRUGS (2)
  1. OPANA ER 20MG [Suspect]
     Indication: PAIN
     Route: 048
     Dates: end: 2011
  2. OPANA ER 20MG [Suspect]
     Route: 048
     Dates: end: 2011

REACTIONS (3)
  - Muscle tightness [Unknown]
  - Agitation [Unknown]
  - Insomnia [Unknown]
